FAERS Safety Report 15469481 (Version 3)
Quarter: 2019Q4

REPORT INFORMATION
  Report Type: Report from Study
  Country: CO (occurrence: CO)
  Receive Date: 20181005
  Receipt Date: 20191007
  Transmission Date: 20200122
  Serious: Yes (Hospitalization, Other)
  Sender: FDA-Public Use
  Company Number: CO-ASTELLAS-2018US043152

PATIENT
  Age: 10 Year
  Sex: Male
  Weight: 37 kg

DRUGS (15)
  1. MYCOPHENOLATE [Concomitant]
     Active Substance: MYCOPHENOLIC ACID
     Indication: PRODUCT USED FOR UNKNOWN INDICATION
     Dosage: 1 CAPSULE, EVERY 12 HOURS
     Route: 048
  2. CARVEDILOL. [Concomitant]
     Active Substance: CARVEDILOL
     Indication: PRODUCT USED FOR UNKNOWN INDICATION
     Route: 048
     Dates: start: 20180720
  3. TACROLIMUS. [Suspect]
     Active Substance: TACROLIMUS
     Dosage: 9 MG (1 CAPSULE OF 5MG AND 4 CAPSULES OF 1MG ), ONCE DAILY
     Route: 048
  4. ENALAPRIL [Concomitant]
     Active Substance: ENALAPRIL
     Indication: PRODUCT USED FOR UNKNOWN INDICATION
     Route: 065
  5. CLONIDINE. [Concomitant]
     Active Substance: CLONIDINE
     Indication: PRODUCT USED FOR UNKNOWN INDICATION
     Dosage: 300 MG, ONCE DAILY (3 CAPSULES OF 100 MG DAILY)
     Route: 065
     Dates: start: 2015, end: 20190405
  6. TACROLIMUS. [Suspect]
     Active Substance: TACROLIMUS
     Indication: RENAL TRANSPLANT
     Dosage: 8 MG, ONCE DAILY (1 CAPSULE OF 5 MG AND 3 CAPSULES OF 1 MG)
     Route: 048
     Dates: start: 20180720
  7. CALCIUM CARBONATE. [Concomitant]
     Active Substance: CALCIUM CARBONATE
     Dosage: 400 MG, ONCE DAILY (200 MG, 2 CAPSULES PER DAY)
     Route: 048
     Dates: start: 201901
  8. PREDNISOLONE. [Concomitant]
     Active Substance: PREDNISOLONE
     Indication: PRODUCT USED FOR UNKNOWN INDICATION
     Dosage: 2 CAPSULES, EVERY 12 HOURS
     Route: 048
     Dates: start: 20180720
  9. CALCIUM CARBONATE. [Concomitant]
     Active Substance: CALCIUM CARBONATE
     Indication: PRODUCT USED FOR UNKNOWN INDICATION
     Dosage: 800 MG, ONCE DAILY (200 MG 4 CAPSULES PER DAY)
     Route: 048
     Dates: end: 201901
  10. MINOXIDIL. [Concomitant]
     Active Substance: MINOXIDIL
     Indication: PRODUCT USED FOR UNKNOWN INDICATION
     Route: 065
     Dates: end: 20190405
  11. OMEPRAZOLE. [Concomitant]
     Active Substance: OMEPRAZOLE
     Indication: GASTRITIS
     Route: 065
  12. ATORVASTATIN [Concomitant]
     Active Substance: ATORVASTATIN
     Indication: PRODUCT USED FOR UNKNOWN INDICATION
     Dosage: 1 CAPSULE, ONCE DAILY
     Route: 048
     Dates: start: 20180720
  13. CARBIDOL [Concomitant]
     Indication: PRODUCT USED FOR UNKNOWN INDICATION
     Route: 065
  14. ENALAPRIL [Concomitant]
     Active Substance: ENALAPRIL
     Dosage: 2 CAPSULES, ONCE DAILY
     Route: 048
     Dates: start: 20180720
  15. OMEPRAZOLE. [Concomitant]
     Active Substance: OMEPRAZOLE
     Route: 048
     Dates: start: 20190912

REACTIONS (5)
  - Thrombosis [Recovered/Resolved]
  - Pyrexia [Recovered/Resolved]
  - Fluid retention [Recovered/Resolved]
  - Device related infection [Recovered/Resolved]
  - Nephrotic syndrome [Recovered/Resolved]

NARRATIVE: CASE EVENT DATE: 20180926
